FAERS Safety Report 9302133 (Version 2)
Quarter: 2013Q2

REPORT INFORMATION
  Report Type: Spontaneous
  Country: KR (occurrence: KR)
  Receive Date: 20130522
  Receipt Date: 20130531
  Transmission Date: 20140414
  Serious: Yes (Hospitalization)
  Sender: FDA-Public Use
  Company Number: KR-B.I. PHARMACEUTICALS,INC./RIDGEFIELD-2013-BI-13904RK

PATIENT
  Age: 62 Year
  Sex: Male
  Weight: 68 kg

DRUGS (4)
  1. PRADAXA [Suspect]
     Indication: CEREBROVASCULAR ACCIDENT PROPHYLAXIS
     Dosage: 300 MG
     Dates: start: 20130423
  2. PRADAXA [Suspect]
     Indication: ATRIAL FIBRILLATION
  3. GLIATILIN [Concomitant]
     Indication: CEREBROVASCULAR ACCIDENT PROPHYLAXIS
     Dosage: 800 MG
     Route: 048
     Dates: start: 20120703
  4. MICARDIS PLUS [Concomitant]
     Indication: HYPERTENSION
     Route: 048
     Dates: start: 20120703

REACTIONS (1)
  - Thalamic infarction [Recovered/Resolved]
